FAERS Safety Report 9149800 (Version 1)
Quarter: 2013Q1

REPORT INFORMATION
  Report Type: Spontaneous
  Country: US (occurrence: US)
  Receive Date: 20130308
  Receipt Date: 20130308
  Transmission Date: 20140127
  Serious: No
  Sender: FDA-Public Use
  Company Number: US-ENDO PHARMACEUTICALS INC.-OPCR20120502

PATIENT
  Sex: Female

DRUGS (4)
  1. OPANA ER [Suspect]
     Indication: MULTIPLE SCLEROSIS
     Route: 048
     Dates: start: 201203
  2. OPANA ER [Suspect]
     Indication: NEUROPATHY PERIPHERAL
  3. ROXICODONE [Concomitant]
     Indication: MULTIPLE SCLEROSIS
     Dosage: UNKNOWN
     Route: 048
  4. ROXICODONE [Concomitant]
     Indication: NEUROPATHY PERIPHERAL

REACTIONS (4)
  - Eructation [Not Recovered/Not Resolved]
  - Nausea [Not Recovered/Not Resolved]
  - Abdominal pain upper [Not Recovered/Not Resolved]
  - Vomiting [Not Recovered/Not Resolved]
